FAERS Safety Report 16792978 (Version 3)
Quarter: 2019Q4

REPORT INFORMATION
  Report Type: Report from Study
  Country: None (occurrence: US)
  Receive Date: 20190911
  Receipt Date: 20191225
  Transmission Date: 20200122
  Serious: Yes (Life-Threatening, Hospitalization, Congenital Anomaly, Other)
  Sender: FDA-Public Use
  Company Number: US-ABBVIE-19K-163-2918252-00

PATIENT
  Sex: Female

DRUGS (2)
  1. HUMIRA [Suspect]
     Active Substance: ADALIMUMAB
     Dosage: CITRATE FREE
     Route: 063
  2. HUMIRA [Suspect]
     Active Substance: ADALIMUMAB
     Indication: MATERNAL EXPOSURE TIMING UNSPECIFIED
     Dosage: CITRATE FREE
     Route: 064

REACTIONS (10)
  - Coarctation of the aorta [Recovered/Resolved]
  - Trisomy 21 [Not Recovered/Not Resolved]
  - Pneumothorax [Recovered/Resolved]
  - Foetal exposure during pregnancy [Unknown]
  - Premature baby [Recovered/Resolved]
  - Placental disorder [Recovered/Resolved]
  - Heart disease congenital [Recovered/Resolved]
  - Exposure via breast milk [Unknown]
  - Dyspnoea [Recovered/Resolved]
  - Low birth weight baby [Recovered/Resolved]

NARRATIVE: CASE EVENT DATE: 201904
